FAERS Safety Report 5620973-9 (Version None)
Quarter: 2008Q1

REPORT INFORMATION
  Report Type: 
  Country: None (occurrence: None)
  Receive Date: 20080208
  Receipt Date: 20080129
  Transmission Date: 20080703
  Serious: Yes (Life-Threatening)
  Sender: FDA-Public Use
  Company Number: ES-PFIZER INC-2008009959

PATIENT
  Age: 72 Year
  Sex: Male

DRUGS (9)
  1. AMLODIPINE [Suspect]
     Indication: MYOCARDIAL ISCHAEMIA
     Route: 048
     Dates: start: 20071211, end: 20071221
  2. ORFIDAL [Concomitant]
     Dosage: DAILY DOSE:1MG
     Route: 048
     Dates: start: 20071211, end: 20071221
  3. CARDYL [Concomitant]
     Dosage: DAILY DOSE:20MG
     Route: 048
     Dates: start: 20070601, end: 20071221
  4. ENALAPRIL MALEATE [Concomitant]
     Dosage: DAILY DOSE:10MG
     Route: 048
     Dates: start: 20071210, end: 20071221
  5. OMEPRAZOLE [Concomitant]
     Dosage: DAILY DOSE:20MG
     Route: 048
     Dates: start: 20071211, end: 20071221
  6. CLEXANE [Concomitant]
     Dosage: DAILY DOSE:4MG
     Route: 048
     Dates: start: 20071211, end: 20071221
  7. ISCOVER [Concomitant]
     Indication: MYOCARDIAL ISCHAEMIA
     Dosage: DAILY DOSE:75MG
     Route: 048
     Dates: start: 20070601, end: 20071221
  8. COROPRES [Concomitant]
     Dosage: DAILY DOSE:6.25MG
     Route: 048
     Dates: start: 20071209, end: 20071221
  9. SEREVENT [Concomitant]
     Route: 055
     Dates: start: 20071211, end: 20071221

REACTIONS (1)
  - HYPONATRAEMIA [None]
